FAERS Safety Report 6023425-X (Version None)
Quarter: 2008Q4

REPORT INFORMATION
  Report Type: 
  Country: None (occurrence: None)
  Receive Date: 20081230
  Receipt Date: 20081215
  Transmission Date: 20090506
  Serious: Yes (Hospitalization)
  Sender: FDA-Public Use
  Company Number: JP-GENENTECH-270907

PATIENT
  Sex: Female

DRUGS (2)
  1. HERCEPTIN [Suspect]
     Indication: BREAST CANCER
     Dosage: 8 MG/KG, UNK
     Route: 042
     Dates: start: 20081022, end: 20081022
  2. ANTIBIOTICS (NOT SPECIFIED) [Concomitant]
     Indication: PYREXIA
     Dosage: UNK
     Route: 041
     Dates: start: 20081025, end: 20081025

REACTIONS (2)
  - PLATELET COUNT DECREASED [None]
  - PYREXIA [None]
